FAERS Safety Report 7539607-1 (Version None)
Quarter: 2011Q2

REPORT INFORMATION
  Report Type: 
  Country: None (occurrence: None)
  Receive Date: 20110610
  Receipt Date: 20110606
  Transmission Date: 20111010
  Serious: Yes (Other)
  Sender: FDA-Public Use
  Company Number: IT-BRISTOL-MYERS SQUIBB COMPANY-15811417

PATIENT
  Age: 87 Year
  Sex: Female

DRUGS (4)
  1. COUMADIN [Suspect]
     Dosage: 1DF=1 UNIT
     Route: 048
     Dates: start: 20100415, end: 20110414
  2. LANOXIN [Concomitant]
     Dosage: LANOXIN 0.125MG TABS
  3. VALSARTAN  AND HYDROCHLOROTHIAZIDE [Suspect]
     Dosage: 1DF=160MG/12.5MG ; COTAREG 160MG/12.5MG FILM COATED TABS
  4. LUCEN [Concomitant]

REACTIONS (2)
  - BLOOD PRESSURE INCREASED [None]
  - EPISTAXIS [None]
